FAERS Safety Report 22717281 (Version 6)
Quarter: 2025Q1

REPORT INFORMATION
  Report Type: Report from Study
  Country: AR (occurrence: AR)
  Receive Date: 20230718
  Receipt Date: 20250310
  Transmission Date: 20250409
  Serious: Yes (Hospitalization, Other)
  Sender: NOVARTIS
  Company Number: AR-002147023-NVSC2023AR158057

PATIENT
  Age: 52 Year
  Sex: Female

DRUGS (3)
  1. KISQALI [Suspect]
     Active Substance: RIBOCICLIB
     Indication: Breast cancer metastatic
     Dosage: 600 MG, QD (DAY 1 TO 21 EVERY 28)
     Route: 048
     Dates: start: 20220722
  2. KISQALI [Suspect]
     Active Substance: RIBOCICLIB
     Route: 065
     Dates: end: 20250227
  3. LETROZOLE [Suspect]
     Active Substance: LETROZOLE
     Indication: Breast cancer metastatic
     Route: 065
     Dates: start: 20220722, end: 20250227

REACTIONS (7)
  - Intervertebral disc disorder [Unknown]
  - Pain [Unknown]
  - Metastasis [Unknown]
  - Leukopenia [Unknown]
  - Hepatic mass [Unknown]
  - Pulmonary mass [Unknown]
  - White blood cell count decreased [Unknown]

NARRATIVE: CASE EVENT DATE: 20230701
